FAERS Safety Report 6655571-1 (Version None)
Quarter: 2010Q1

REPORT INFORMATION
  Report Type: 
  Country: None (occurrence: None)
  Receive Date: 20100329
  Receipt Date: 20100104
  Transmission Date: 20100710
  Serious: No
  Sender: FDA-Public Use
  Company Number: US-TYCO HEALTHCARE/MALLINCKRODT-T201000021

PATIENT

DRUGS (2)
  1. TECHNETIUM TC 99M SESTAMIBI [Suspect]
     Dosage: UNK, SINGLE
     Dates: start: 20091230, end: 20091230
  2. ULTRA-TECHNEKOW [Concomitant]
     Dosage: UNK, SINGLE
     Dates: start: 20091230, end: 20091230

REACTIONS (1)
  - DRUG INEFFECTIVE [None]
